FAERS Safety Report 14455347 (Version 2)
Quarter: 2018Q1

REPORT INFORMATION
  Report Type: Spontaneous
  Country: US (occurrence: US)
  Receive Date: 20180129
  Receipt Date: 20180309
  Transmission Date: 20180509
  Serious: Yes (Hospitalization)
  Sender: FDA-Public Use
  Company Number: US-DENDREON PHARMACEUTICALS LLC-2017DEN000043

PATIENT

DRUGS (8)
  1. LUPRON [Concomitant]
     Active Substance: LEUPROLIDE ACETATE
  2. COREG [Concomitant]
     Active Substance: CARVEDILOL
  3. PROVENGE [Suspect]
     Active Substance: SIPULEUCEL-T
     Indication: PROSTATE CANCER
     Dosage: 250 ML, (1 IN 1 D)
     Route: 042
     Dates: start: 20171116, end: 20171116
  4. TAMSULOSIN [Concomitant]
     Active Substance: TAMSULOSIN
  5. VITAMIN D                          /00107901/ [Concomitant]
     Active Substance: ERGOCALCIFEROL
  6. NORVASC [Concomitant]
     Active Substance: AMLODIPINE BESYLATE
  7. TYLENOL [Concomitant]
     Active Substance: ACETAMINOPHEN
  8. XGEVA [Concomitant]
     Active Substance: DENOSUMAB

REACTIONS (4)
  - Asthenia [Unknown]
  - Extradural abscess [Recovered/Resolved]
  - Malaise [Unknown]
  - Pain [Unknown]
